FAERS Safety Report 7691741-1 (Version None)
Quarter: 2011Q3

REPORT INFORMATION
  Report Type: 
  Country: None (occurrence: None)
  Receive Date: 20110818
  Receipt Date: 20110811
  Transmission Date: 20111222
  Serious: Yes (Other)
  Sender: FDA-Public Use
  Company Number: US-GLAXOSMITHKLINE-A0941358A

PATIENT
  Age: 84 Year
  Sex: Female

DRUGS (6)
  1. SYNTHROID [Concomitant]
  2. FISH OIL [Concomitant]
  3. FOLIC ACID [Concomitant]
  4. AVANDAMET [Suspect]
     Indication: TYPE 2 DIABETES MELLITUS
     Dosage: 1TAB THREE TIMES PER DAY
     Route: 048
     Dates: start: 19990101, end: 20061001
  5. ASCORBIC ACID [Concomitant]
  6. LIPITOR [Concomitant]

REACTIONS (15)
  - DIZZINESS [None]
  - INSOMNIA [None]
  - FLUID RETENTION [None]
  - VISUAL IMPAIRMENT [None]
  - RENAL IMPAIRMENT [None]
  - SOMNOLENCE [None]
  - HYPERTENSION [None]
  - FALL [None]
  - CYST [None]
  - CONFUSIONAL STATE [None]
  - ANAEMIA [None]
  - VISUAL ACUITY REDUCED [None]
  - BLINDNESS UNILATERAL [None]
  - HEART RATE IRREGULAR [None]
  - PAIN [None]
